FAERS Safety Report 10541629 (Version 2)
Quarter: 2014Q4

REPORT INFORMATION
  Report Type: Spontaneous
  Country: US (occurrence: US)
  Receive Date: 20141024
  Receipt Date: 20141024
  Transmission Date: 20150529
  Serious: No
  Sender: FDA-Public Use
  Company Number: US-ALLERGAN-1400172US

PATIENT
  Sex: Female
  Weight: 72.11 kg

DRUGS (14)
  1. ALPHAGAN P [Suspect]
     Active Substance: BRIMONIDINE TARTRATE
     Dosage: ONE DROP AT NIGHT, RIGHT EYE ONLY
     Route: 047
     Dates: start: 20131221, end: 201401
  2. HYDROXYZINE PQ [Concomitant]
     Indication: PRURITUS
     Dosage: AS NEEDED
  3. ALPHAGAN P [Suspect]
     Active Substance: BRIMONIDINE TARTRATE
     Dosage: TWICE DAILY, BOTH EYES
     Route: 047
     Dates: start: 20131030, end: 20131201
  4. ASPIRIN. [Concomitant]
     Active Substance: ASPIRIN
     Indication: CARDIAC DISORDER
     Dosage: 325 MG, QD
     Dates: start: 2004
  5. VIVELLE DOT [Concomitant]
     Active Substance: ESTRADIOL
     Indication: OESTROGEN THERAPY
     Dosage: 2 DF, Q WEEK
     Dates: start: 1994
  6. BOTOX [Concomitant]
     Active Substance: ONABOTULINUMTOXINA
     Indication: OCULOGYRIC CRISIS
     Dosage: 10 SHOTS EVERY 3 MONTHS AROUND EACH EYE
     Route: 030
  7. ZYRTEC [Concomitant]
     Active Substance: CETIRIZINE HYDROCHLORIDE
     Indication: HYPERSENSITIVITY
     Dosage: 10 MG, QD
     Dates: start: 2009
  8. LOSARTAN [Concomitant]
     Active Substance: LOSARTAN
     Indication: HYPERTENSION
     Dosage: 50 MG, BID
  9. ALPHAGAN P [Suspect]
     Active Substance: BRIMONIDINE TARTRATE
     Indication: INTRAOCULAR PRESSURE INCREASED
     Dosage: ONE DROP AT NIGHT, BOTH EYES
     Route: 047
     Dates: start: 201401
  10. LATANOPROST. [Suspect]
     Active Substance: LATANOPROST
     Dosage: 1 DROP IN EYE LEFT EYE ONLY, AT NIGHT
     Route: 047
     Dates: start: 20140101, end: 20140113
  11. HYDROCHLOROTHIAZIDE. [Concomitant]
     Active Substance: HYDROCHLOROTHIAZIDE
     Indication: HYPERTENSION
     Dosage: 25 MG, QOD
  12. LATANOPROST. [Suspect]
     Active Substance: LATANOPROST
     Indication: INTRAOCULAR PRESSURE INCREASED
     Dosage: 1 DROP IN EACH EYE AT NIGHT
     Route: 047
     Dates: start: 20140116
  13. NITROGLYCERIN. [Suspect]
     Active Substance: NITROGLYCERIN
     Indication: ANGINA PECTORIS
  14. LATANOPROST. [Suspect]
     Active Substance: LATANOPROST
     Dosage: 1 DROP IN EACH EYE AT NIGHT
     Route: 047
     Dates: end: 20131201

REACTIONS (13)
  - Epistaxis [Unknown]
  - Vitreous floaters [Unknown]
  - Scab [Unknown]
  - Nasal discomfort [Unknown]
  - Fatigue [Unknown]
  - Urticaria [Unknown]
  - Pruritus generalised [Unknown]
  - Vision blurred [Unknown]
  - Chest pain [Unknown]
  - Rhinorrhoea [Unknown]
  - Diplopia [Unknown]
  - Abdominal pain upper [Unknown]
  - Rhinalgia [Unknown]
